FAERS Safety Report 14139103 (Version 8)
Quarter: 2024Q1

REPORT INFORMATION
  Report Type: Report from Study
  Country: US (occurrence: US)
  Receive Date: 20171027
  Receipt Date: 20240116
  Transmission Date: 20240410
  Serious: Yes (Disabling, Other)
  Sender: FDA-Public Use
  Company Number: US-ARIAD PHARMACEUTICALS, INC-2015US005899

PATIENT
  Sex: Male
  Weight: 76 kg

DRUGS (3)
  1. PONATINIB [Suspect]
     Active Substance: PONATINIB
     Indication: Chronic myeloid leukaemia
     Dosage: 30 MILLIGRAM, QD
     Route: 048
     Dates: start: 20140925
  2. PONATINIB [Suspect]
     Active Substance: PONATINIB
     Indication: Chronic myeloid leukaemia
     Dosage: 15 MILLIGRAM, QD
     Route: 048
  3. PONATINIB [Suspect]
     Active Substance: PONATINIB
     Dosage: 15 MILLIGRAM, QD
     Route: 048
     Dates: end: 20231228

REACTIONS (11)
  - Neuropathy peripheral [Not Recovered/Not Resolved]
  - Disability [Unknown]
  - Seizure [Unknown]
  - Cerebrovascular accident [Unknown]
  - Fatigue [Not Recovered/Not Resolved]
  - White blood cell count increased [Unknown]
  - Contusion [Unknown]
  - Blood pressure increased [Unknown]
  - Feeling abnormal [Unknown]
  - Product dose omission issue [Recovered/Resolved]
  - Product use issue [Unknown]
